FAERS Safety Report 12213620 (Version 17)
Quarter: 2016Q4

REPORT INFORMATION
  Report Type: Report from Study
  Country: JP (occurrence: JP)
  Receive Date: 20160328
  Receipt Date: 20161103
  Transmission Date: 20170207
  Serious: Yes (Hospitalization, Other)
  Sender: FDA-Public Use
  Company Number: JP-AMGEN-JPNCT2016036093

PATIENT
  Age: 70 Year
  Sex: Female
  Weight: 42.4 kg

DRUGS (19)
  1. 5-FU [Suspect]
     Active Substance: FLUOROURACIL
     Dosage: 200 MG/M2, Q2WK
     Route: 040
     Dates: start: 20160404, end: 20160620
  2. PANITUMUMAB [Suspect]
     Active Substance: PANITUMUMAB
     Dosage: 4.8 MG, Q2WK
     Route: 041
     Dates: start: 20160706, end: 20160920
  3. 5-FU [Suspect]
     Active Substance: FLUOROURACIL
     Dosage: 1600 MG/M2, Q2WEEKS
     Route: 041
     Dates: start: 20161017
  4. PANITUMUMAB [Suspect]
     Active Substance: PANITUMUMAB
     Indication: COLON CANCER
     Dosage: 270 MG, Q2WK
     Route: 041
     Dates: start: 20160208, end: 20160307
  5. PANITUMUMAB [Suspect]
     Active Substance: PANITUMUMAB
     Dosage: 4.8 MG, Q2WK
     Route: 041
     Dates: start: 20161017
  6. 5-FU [Suspect]
     Active Substance: FLUOROURACIL
     Dosage: 1600 MG/M2, Q2WEEKS
     Route: 041
     Dates: start: 20160706, end: 20160920
  7. CALCIUM LEVOFOLINATE [Concomitant]
     Active Substance: LEVOLEUCOVORIN CALCIUM
     Dosage: UNK UNK, Q2WEEKS
     Route: 041
     Dates: start: 20160706, end: 20160920
  8. PANITUMUMAB [Suspect]
     Active Substance: PANITUMUMAB
     Dosage: 270 MG, Q2WK
     Route: 041
     Dates: start: 20160404, end: 20160620
  9. 5-FU [Suspect]
     Active Substance: FLUOROURACIL
     Dosage: 3250 MG, Q2WEEKS
     Route: 041
     Dates: start: 20160208, end: 20160307
  10. 5-FU [Suspect]
     Active Substance: FLUOROURACIL
     Dosage: 200 MG/M2, Q2WK
     Route: 040
     Dates: start: 20160725, end: 20160920
  11. CALCIUM LEVOFOLINATE [Concomitant]
     Active Substance: LEVOLEUCOVORIN CALCIUM
     Indication: COLON CANCER
     Dosage: 250 MG, Q2WEEKS
     Route: 041
     Dates: start: 20160208, end: 20160307
  12. CALCIUM LEVOFOLINATE [Concomitant]
     Active Substance: LEVOLEUCOVORIN CALCIUM
     Dosage: 250 MG, Q2WEEKS
     Route: 041
     Dates: start: 20160404, end: 20160620
  13. OXALIPLATIN. [Suspect]
     Active Substance: OXALIPLATIN
     Indication: COLON CANCER
     Dosage: 110 MG, Q2WEEKS
     Route: 041
     Dates: start: 20160208, end: 20160307
  14. 5-FU [Suspect]
     Active Substance: FLUOROURACIL
     Dosage: 200 MG/M2, Q2WK
     Route: 040
     Dates: start: 20161017
  15. OXALIPLATIN. [Suspect]
     Active Substance: OXALIPLATIN
     Dosage: 50 MG/M2, Q2WEEKS
     Route: 041
     Dates: start: 20160706, end: 20160810
  16. 5-FU [Suspect]
     Active Substance: FLUOROURACIL
     Indication: COLON CANCER
     Dosage: 500 MG, Q2WK
     Route: 040
     Dates: start: 20160208, end: 20160307
  17. 5-FU [Suspect]
     Active Substance: FLUOROURACIL
     Dosage: 2000 MG/M2, Q2WEEKS
     Route: 041
     Dates: start: 20160404, end: 20160620
  18. OXALIPLATIN. [Suspect]
     Active Substance: OXALIPLATIN
     Dosage: 65 MG/M2, Q2WEEKS
     Route: 041
     Dates: start: 20160404, end: 20160620
  19. CALCIUM LEVOFOLINATE [Concomitant]
     Active Substance: LEVOLEUCOVORIN CALCIUM
     Dosage: UNK UNK, Q2WEEKS
     Route: 041
     Dates: start: 20161017

REACTIONS (22)
  - Decreased appetite [Recovered/Resolved]
  - Pruritus [Unknown]
  - Pruritus [Recovered/Resolved]
  - Pigmentation disorder [Recovered/Resolved]
  - Epistaxis [Recovered/Resolved]
  - Rash [Unknown]
  - Dry skin [Unknown]
  - Stomatitis [Unknown]
  - Stomatitis [Recovered/Resolved]
  - Paronychia [Recovered/Resolved]
  - Dehydration [Recovered/Resolved]
  - Dysgeusia [Recovered/Resolved]
  - Constipation [Recovered/Resolved]
  - Paronychia [Unknown]
  - Peripheral sensory neuropathy [Unknown]
  - Dermatitis acneiform [Recovered/Resolved]
  - Palmar-plantar erythrodysaesthesia syndrome [Recovered/Resolved]
  - Dry skin [Recovered/Resolved]
  - Laceration [Recovered/Resolved]
  - Rash [Recovered/Resolved]
  - Fatigue [Unknown]
  - Nausea [Recovered/Resolved]

NARRATIVE: CASE EVENT DATE: 20160208
